FAERS Safety Report 13070479 (Version 1)
Quarter: 2016Q4

REPORT INFORMATION
  Report Type: Report from Study
  Country: CA (occurrence: CA)
  Receive Date: 20161229
  Receipt Date: 20161229
  Transmission Date: 20170207
  Serious: Yes (Hospitalization, Other)
  Sender: FDA-Public Use
  Company Number: CA-AMGEN-CANSL2016182388

PATIENT
  Age: 70 Year
  Sex: Female

DRUGS (1)
  1. PROLIA [Suspect]
     Active Substance: DENOSUMAB
     Indication: PRODUCT USED FOR UNKNOWN INDICATION
     Dosage: UNK
     Route: 065

REACTIONS (7)
  - Surgery [Unknown]
  - Haemorrhoids [Unknown]
  - Leukaemia [Unknown]
  - Platelet count decreased [Unknown]
  - Fall [Unknown]
  - Unevaluable event [Unknown]
  - Constipation [Unknown]

NARRATIVE: CASE EVENT DATE: 2016
